FAERS Safety Report 7284449-8 (Version None)
Quarter: 2011Q1

REPORT INFORMATION
  Report Type: 
  Country: None (occurrence: None)
  Receive Date: 20110209
  Receipt Date: 20110207
  Transmission Date: 20110831
  Serious: Yes (Life-Threatening, Hospitalization, Other)
  Sender: FDA-Public Use
  Company Number: CA-PFIZER INC-2010018547

PATIENT
  Age: 42 Year
  Sex: Female
  Weight: 82.086 kg

DRUGS (6)
  1. CELECOXIB [Concomitant]
     Dosage: 100 UNK, 2X/DAY
  2. CHAMPIX [Suspect]
     Dosage: 1 MG, 2X/DAY
     Dates: end: 20080311
  3. NORTRIPTYLINE [Concomitant]
     Indication: PROPHYLAXIS
  4. NORTRIPTYLINE [Concomitant]
     Indication: MIGRAINE
     Dosage: 75 UNK, 1X/DAY
     Dates: start: 19950101
  5. CHAMPIX [Suspect]
     Indication: SMOKING CESSATION THERAPY
     Dosage: 0.5 MG, 1X/DAY
     Route: 048
     Dates: start: 20080201
  6. CHAMPIX [Suspect]
     Dosage: 0.5 MG, 2X/DAY

REACTIONS (3)
  - SUICIDE ATTEMPT [None]
  - INTENTIONAL OVERDOSE [None]
  - IRRITABILITY [None]
